FAERS Safety Report 20966607 (Version 2)
Quarter: 2022Q4

REPORT INFORMATION
  Report Type: Other
  Country: JP (occurrence: JP)
  Receive Date: 20220616
  Receipt Date: 20221013
  Transmission Date: 20230113
  Serious: Yes (Hospitalization, Other)
  Sender: FDA-Public Use
  Company Number: JP-CHUGAI-2022022347

PATIENT
  Age: 69 Year
  Sex: Female
  Weight: 45.3 kg

DRUGS (4)
  1. ENTRECTINIB [Suspect]
     Active Substance: ENTRECTINIB
     Indication: Non-small cell lung cancer
     Route: 048
     Dates: start: 20210407, end: 20210420
  2. ENTRECTINIB [Suspect]
     Active Substance: ENTRECTINIB
     Route: 048
     Dates: start: 20210507, end: 20210530
  3. ENTRECTINIB [Suspect]
     Active Substance: ENTRECTINIB
     Dosage: 600 MILLIGRAM, QD
     Route: 048
     Dates: start: 20210706, end: 20210825
  4. ENTRECTINIB [Suspect]
     Active Substance: ENTRECTINIB
     Route: 048
     Dates: start: 20210902, end: 20220216

REACTIONS (4)
  - Liver disorder [Unknown]
  - Fracture [Recovering/Resolving]
  - Post procedural infection [Recovering/Resolving]
  - Oedema [Unknown]

NARRATIVE: CASE EVENT DATE: 20210421
